FAERS Safety Report 9736291 (Version 1)
Quarter: 2013Q4

REPORT INFORMATION
  Report Type: Spontaneous
  Country: US (occurrence: None)
  Receive Date: 20131204
  Receipt Date: 20131204
  Transmission Date: 20140711
  Serious: Yes (Death)
  Sender: FDA-Public Use
  Company Number: US-ALKEM-000275

PATIENT
  Age: 76 Year
  Sex: Female

DRUGS (3)
  1. METFORMIN (METFORMIN) [Suspect]
     Route: 048
  2. VERAPAMIL (VERAPAMIL) [Suspect]
     Route: 048
  3. LISINOPRIL(LISINOPRIL) [Suspect]
     Route: 048

REACTIONS (1)
  - Exposure via ingestion [None]
